FAERS Safety Report 18272618 (Version 1)
Quarter: 2020Q3

REPORT INFORMATION
  Report Type: Spontaneous
  Country: US (occurrence: US)
  Receive Date: 20200916
  Receipt Date: 20200916
  Transmission Date: 20201103
  Serious: Yes (Hospitalization)
  Sender: FDA-Public Use
  Company Number: None

PATIENT
  Age: 64 Year
  Sex: Male
  Weight: 118 kg

DRUGS (1)
  1. REMDESIVIR (EUA) (REMDESIVIR (EUA)) [Suspect]
     Active Substance: REMDESIVIR
     Indication: COVID-19
     Route: 042
     Dates: start: 20200809, end: 20200813

REACTIONS (4)
  - Alanine aminotransferase increased [None]
  - Hepatic enzyme increased [None]
  - Aspartate aminotransferase increased [None]
  - Liver injury [None]

NARRATIVE: CASE EVENT DATE: 20200816
